FAERS Safety Report 5223679-3 (Version None)
Quarter: 2007Q1

REPORT INFORMATION
  Report Type: 
  Country: None (occurrence: None)
  Receive Date: 20070130
  Receipt Date: 20070118
  Transmission Date: 20070707
  Serious: Yes (Other)
  Sender: FDA-Public Use
  Company Number: PHNR2006AU01520

PATIENT
  Age: 82 Year
  Sex: Female

DRUGS (6)
  1. TRANSDERM-NITRO [Suspect]
     Indication: ANGINA PECTORIS
     Dosage: 25MG PATCHES DAILY
     Route: 062
     Dates: end: 20061103
  2. TRANSDERM-NITRO [Suspect]
     Dosage: 25MG PATCHES
     Route: 062
  3. CARDIZEM [Concomitant]
     Dosage: 240MG, QD
  4. BICOR [Concomitant]
     Dosage: 10MG, QD
  5. AVAPRO HCT [Concomitant]
     Dosage: 300/12.5, QD
     Dates: start: 20040606
  6. NEXIUM [Concomitant]
     Dosage: 20MG, QD

REACTIONS (5)
  - ERYTHEMA [None]
  - PRURITUS [None]
  - SKIN BURNING SENSATION [None]
  - SKIN IRRITATION [None]
  - SWELLING [None]
